FAERS Safety Report 9580366 (Version 1)
Quarter: 2013Q4

REPORT INFORMATION
  Report Type: Spontaneous
  Country: JP (occurrence: JP)
  Receive Date: 20131002
  Receipt Date: 20131002
  Transmission Date: 20140711
  Serious: Yes (Other)
  Sender: FDA-Public Use
  Company Number: JP-ASTELLAS-2013JP010034

PATIENT
  Sex: Male

DRUGS (6)
  1. PROGRAF [Suspect]
     Indication: IMMUNOSUPPRESSANT DRUG THERAPY
     Dosage: 4 MG, UNKNOWN/D
     Route: 065
  2. PROGRAF [Interacting]
     Dosage: UNK
     Route: 065
  3. ITRACONAZOLE [Interacting]
     Indication: ORAL CANDIDIASIS
     Dosage: UNK
     Route: 065
  4. CELLCEPT                           /01275102/ [Concomitant]
     Indication: IMMUNOSUPPRESSANT DRUG THERAPY
     Route: 048
  5. METHYLPREDNISOLONE [Concomitant]
     Indication: IMMUNOSUPPRESSANT DRUG THERAPY
     Route: 065
  6. SIMULECT [Concomitant]
     Indication: IMMUNOSUPPRESSANT DRUG THERAPY
     Route: 065

REACTIONS (3)
  - Drug interaction [Unknown]
  - Nephropathy toxic [Unknown]
  - Renal disorder [Unknown]
